FAERS Safety Report 8376033-X (Version None)
Quarter: 2012Q2

REPORT INFORMATION
  Report Type: 
  Country: None (occurrence: None)
  Receive Date: 20120518
  Receipt Date: 20120503
  Transmission Date: 20120825
  Serious: Yes (Hospitalization)
  Sender: FDA-Public Use
  Company Number: 12AE005

PATIENT
  Age: 75 Year
  Sex: Male

DRUGS (12)
  1. HYDROCHLOROTHIAZIDE [Concomitant]
  2. VITAMIN B COMPLEX CAP [Concomitant]
  3. CHLORPHENIRAMINE MALEATE [Suspect]
     Indication: RHINORRHOEA
     Dosage: 1 EVERY 4-5 HOURS,MOUTH
     Dates: start: 20120423, end: 20120429
  4. CHLORPHENIRAMINE MALEATE [Suspect]
     Indication: CELLULITIS
     Dosage: 1 EVERY 4-5 HOURS,MOUTH
     Dates: start: 20120423, end: 20120429
  5. LISINOPRIL [Concomitant]
  6. MULTI-VITAMINS [Concomitant]
  7. VITAMIN E [Concomitant]
  8. LOVAZA [Concomitant]
  9. ASPIRIN [Concomitant]
  10. METOPROLOL TARTRATE [Concomitant]
  11. MULTAQ [Concomitant]
  12. WARFARIN SODIUM [Concomitant]

REACTIONS (1)
  - HEART RATE INCREASED [None]
